FAERS Safety Report 6715289-3 (Version None)
Quarter: 2010Q2

REPORT INFORMATION
  Report Type: 
  Country: None (occurrence: None)
  Receive Date: 20100507
  Receipt Date: 20100429
  Transmission Date: 20101027
  Serious: Yes (Death)
  Sender: FDA-Public Use
  Company Number: US-GENZYME-THYM-1001474

PATIENT
  Sex: Male
  Weight: 110.5 kg

DRUGS (1)
  1. THYMOGLOBULIN [Suspect]
     Indication: PROPHYLAXIS AGAINST TRANSPLANT REJECTION
     Dosage: 150 MG, ONCE
     Route: 042
     Dates: start: 20091116, end: 20091116

REACTIONS (2)
  - CARDIOMYOPATHY [None]
  - DRUG ADMINISTRATION ERROR [None]
